FAERS Safety Report 7825847-0 (Version None)
Quarter: 2011Q4

REPORT INFORMATION
  Report Type: 
  Country: None (occurrence: None)
  Receive Date: 20111019
  Receipt Date: 20111003
  Transmission Date: 20120403
  Serious: Yes (Hospitalization)
  Sender: FDA-Public Use
  Company Number: US-ROCHE-1002337

PATIENT
  Sex: Female

DRUGS (6)
  1. CYCLOPHOSPHAMIDE [Suspect]
     Indication: BREAST CANCER
     Dosage: OVER 30 MIN ON DAY1
     Route: 042
     Dates: start: 20091110, end: 20100427
  2. HERCEPTIN [Suspect]
     Dosage: OVER 30 MIN FOR 11 WEEKS
  3. EPIRUBICIN HYDROCHLORIDE [Suspect]
     Indication: BREAST CANCER
     Dosage: 15 MIN ON DAY 1
     Route: 042
     Dates: start: 20091110, end: 20100427
  4. HERCEPTIN [Suspect]
     Indication: BREAST CANCER
     Dosage: OVER 90 MIN
     Route: 042
     Dates: start: 20091110, end: 20100427
  5. FLUOROURACIL [Suspect]
     Indication: BREAST CANCER
     Dosage: ON DAY 1
     Route: 042
     Dates: start: 20091110, end: 20100427
  6. PACLITAXEL [Suspect]
     Indication: PRODUCT USED FOR UNKNOWN INDICATION
     Route: 042
     Dates: start: 20091110, end: 20100427

REACTIONS (5)
  - BLOOD DISORDER [None]
  - EMBOLISM [None]
  - ANAEMIA [None]
  - NAUSEA [None]
  - SKIN INFECTION [None]
